FAERS Safety Report 17587395 (Version 4)
Quarter: 2020Q2

REPORT INFORMATION
  Report Type: Report from Study
  Country: LB (occurrence: LB)
  Receive Date: 20200326
  Receipt Date: 20200601
  Transmission Date: 20200713
  Serious: Yes (Death, Hospitalization)
  Sender: FDA-Public Use
  Company Number: NVSC2020LB081874

PATIENT
  Age: 65 Year
  Sex: Female
  Weight: 63 kg

DRUGS (1)
  1. AFINITOR [Suspect]
     Active Substance: EVEROLIMUS
     Indication: BREAST CANCER
     Dosage: 1 DF, QD
     Route: 048
     Dates: start: 20200227, end: 20200302

REACTIONS (7)
  - Metastases to bone [Fatal]
  - Pain [Recovering/Resolving]
  - Bowel movement irregularity [Recovering/Resolving]
  - Decreased appetite [Recovering/Resolving]
  - Malignant neoplasm progression [Fatal]
  - Vomiting [Recovering/Resolving]
  - Breast cancer [Fatal]

NARRATIVE: CASE EVENT DATE: 20200307
